FAERS Safety Report 7301760-2 (Version None)
Quarter: 2011Q1

REPORT INFORMATION
  Report Type: 
  Country: None (occurrence: None)
  Receive Date: 20110218
  Receipt Date: 20110209
  Transmission Date: 20110831
  Serious: Yes (Death, Hospitalization)
  Sender: FDA-Public Use
  Company Number: A0907865A

PATIENT
  Age: 64 Year
  Sex: Male

DRUGS (2)
  1. NO CONCURRENT MEDICATION [Concomitant]
  2. ZOFRAN [Suspect]
     Route: 048
     Dates: end: 20100831

REACTIONS (2)
  - RESPIRATORY FAILURE [None]
  - METASTATIC MALIGNANT MELANOMA [None]
